FAERS Safety Report 25165285 (Version 4)
Quarter: 2025Q4

REPORT INFORMATION
  Report Type: Report from Study
  Country: US (occurrence: US)
  Receive Date: 20250407
  Receipt Date: 20251224
  Transmission Date: 20260117
  Serious: Yes (Hospitalization)
  Sender: ABBVIE
  Company Number: US-ABBVIE-6209196

PATIENT
  Age: 64 Year
  Sex: Female

DRUGS (7)
  1. SKYRIZI [Suspect]
     Active Substance: RISANKIZUMAB-RZAA
     Indication: Psoriatic arthropathy
     Route: 058
     Dates: start: 2022
  2. SKYRIZI [Suspect]
     Active Substance: RISANKIZUMAB-RZAA
     Route: 058
     Dates: start: 20230101
  3. SKYRIZI [Suspect]
     Active Substance: RISANKIZUMAB-RZAA
     Route: 058
  4. KEPPRA [Suspect]
     Active Substance: LEVETIRACETAM
     Indication: Product used for unknown indication
     Route: 065
  5. METHADONE [Suspect]
     Active Substance: METHADONE HYDROCHLORIDE
     Indication: Product used for unknown indication
     Route: 065
     Dates: start: 2005
  6. IRON [Suspect]
     Active Substance: IRON
     Indication: Product used for unknown indication
     Route: 065
  7. IRON [Suspect]
     Active Substance: IRON
     Indication: Product used for unknown indication
     Route: 065
     Dates: start: 20251214

REACTIONS (14)
  - Seizure [Recovering/Resolving]
  - Respiratory disorder [Recovered/Resolved with Sequelae]
  - Speech disorder [Unknown]
  - Hypersomnia [Unknown]
  - Blister [Unknown]
  - Skin exfoliation [Unknown]
  - Memory impairment [Unknown]
  - Fall [Recovered/Resolved]
  - Stress [Unknown]
  - Gait disturbance [Unknown]
  - Psoriatic arthropathy [Recovering/Resolving]
  - Arthralgia [Unknown]
  - General symptom [Unknown]
  - Diplopia [Not Recovered/Not Resolved]

NARRATIVE: CASE EVENT DATE: 20250101
